FAERS Safety Report 6580048-1 (Version None)
Quarter: 2010Q1

REPORT INFORMATION
  Report Type: 
  Country: None (occurrence: None)
  Receive Date: 20100212
  Receipt Date: 20100204
  Transmission Date: 20100710
  Serious: Yes (Disabling)
  Sender: FDA-Public Use
  Company Number: US-BAYER-201011345BCC

PATIENT
  Age: 57 Year
  Sex: Male
  Weight: 73 kg

DRUGS (3)
  1. ASPIRIN [Suspect]
     Indication: ANTICOAGULANT THERAPY
     Dosage: UNIT DOSE: 325 MG
     Route: 048
     Dates: start: 20090901
  2. METOPROLOL TARTRATE [Concomitant]
     Route: 065
  3. LISINOPRIL [Concomitant]
     Route: 065

REACTIONS (3)
  - DEAFNESS [None]
  - HEARING IMPAIRED [None]
  - TINNITUS [None]
